FAERS Safety Report 17159369 (Version 3)
Quarter: 2020Q1

REPORT INFORMATION
  Report Type: Spontaneous
  Country: FI (occurrence: FI)
  Receive Date: 20191216
  Receipt Date: 20200317
  Transmission Date: 20200409
  Serious: Yes (Other)
  Sender: FDA-Public Use
  Company Number: FI-GLAXOSMITHKLINE-FI2019226877

PATIENT
  Age: 86 Year
  Sex: Male

DRUGS (2)
  1. NORFLEX [Concomitant]
     Active Substance: ORPHENADRINE CITRATE
     Indication: BACK PAIN
     Dosage: UNK
     Route: 065
  2. VOLTAREN RAPID [Suspect]
     Active Substance: DICLOFENAC POTASSIUM
     Indication: BACK PAIN
     Dosage: UNK
     Route: 065
     Dates: start: 2000

REACTIONS (1)
  - Erectile dysfunction [Unknown]

NARRATIVE: CASE EVENT DATE: 2000
